FAERS Safety Report 15785951 (Version 6)
Quarter: 2019Q2

REPORT INFORMATION
  Report Type: Spontaneous
  Country: US (occurrence: US)
  Receive Date: 20190103
  Receipt Date: 20190624
  Transmission Date: 20190711
  Serious: No
  Sender: FDA-Public Use
  Company Number: US-SA-2018SA395876

PATIENT
  Age: 85 Year
  Sex: Female
  Weight: 80 kg

DRUGS (2)
  1. LANTUS SOLOSTAR [Suspect]
     Active Substance: INSULIN GLARGINE
     Dosage: 5 U, HS
     Route: 065
     Dates: start: 201903, end: 201903
  2. LANTUS SOLOSTAR [Suspect]
     Active Substance: INSULIN GLARGINE
     Indication: DIABETES MELLITUS
     Dosage: 10 U, HS
     Route: 065
     Dates: start: 20181224

REACTIONS (10)
  - Hyperhidrosis [Recovered/Resolved]
  - Product dose omission [Recovered/Resolved]
  - Blood glucose decreased [Recovered/Resolved]
  - Night sweats [Recovered/Resolved]
  - Malaise [Recovered/Resolved]
  - Body temperature increased [Recovered/Resolved]
  - Head discomfort [Unknown]
  - Hunger [Recovered/Resolved]
  - Device issue [Recovered/Resolved]
  - Blood glucose fluctuation [Recovered/Resolved]
